FAERS Safety Report 15632838 (Version 1)
Quarter: 2018Q4

REPORT INFORMATION
  Report Type: Spontaneous
  Country: US (occurrence: US)
  Receive Date: 20181119
  Receipt Date: 20181119
  Transmission Date: 20190205
  Serious: Yes (Death, Life-Threatening, Hospitalization, Other)
  Sender: FDA-Public Use
  Company Number: US-NAPPMUNDI-USA-2018-0145217

PATIENT
  Age: 2 Year
  Sex: Male

DRUGS (1)
  1. OXYCONTIN [Suspect]
     Active Substance: OXYCODONE HYDROCHLORIDE
     Indication: PRODUCT USED FOR UNKNOWN INDICATION
     Dosage: 80 MG, UNK
     Route: 048

REACTIONS (7)
  - Respiratory arrest [Unknown]
  - Unresponsive to stimuli [Unknown]
  - Dyspnoea [Unknown]
  - Overdose [Fatal]
  - Brain death [Not Recovered/Not Resolved]
  - Victim of homicide [Not Recovered/Not Resolved]
  - Victim of child abuse [Not Recovered/Not Resolved]
